FAERS Safety Report 9572523 (Version 2)
Quarter: 2013Q4

REPORT INFORMATION
  Report Type: Spontaneous
  Country: FR (occurrence: FR)
  Receive Date: 20131001
  Receipt Date: 20131129
  Transmission Date: 20140711
  Serious: Yes (Congenital Anomaly)
  Sender: FDA-Public Use
  Company Number: FR-JNJFOC-20130915559

PATIENT
  Sex: 0

DRUGS (2)
  1. INFLIXIMAB [Suspect]
     Indication: CROHN^S DISEASE
     Route: 064
  2. PURINETHOL [Suspect]
     Indication: CROHN^S DISEASE
     Route: 064
     Dates: end: 20130225

REACTIONS (2)
  - Congenital central nervous system anomaly [Unknown]
  - Foetal exposure during pregnancy [Recovered/Resolved]
